FAERS Safety Report 4338664-3 (Version None)
Quarter: 2004Q2

REPORT INFORMATION
  Report Type: 
  Country: None (occurrence: None)
  Receive Date: 20040409
  Receipt Date: 20040406
  Transmission Date: 20050107
  Serious: Yes (Death)
  Sender: FDA-Public Use
  Company Number: 2004UW00162

PATIENT
  Age: 53 Year
  Sex: Male

DRUGS (2)
  1. SEROQUEL [Suspect]
  2. TOPROL-XL [Concomitant]

REACTIONS (3)
  - ASPIRATION [None]
  - CARDIAC ARREST [None]
  - OVERDOSE [None]
